FAERS Safety Report 8507467-8 (Version None)
Quarter: 2012Q3

REPORT INFORMATION
  Report Type: 
  Country: None (occurrence: None)
  Receive Date: 20120712
  Receipt Date: 20120707
  Transmission Date: 20120928
  Serious: Yes (Other)
  Sender: FDA-Public Use
  Company Number: US-BAYER-2012-069280

PATIENT
  Age: 22 Year
  Sex: Female
  Weight: 82 kg

DRUGS (1)
  1. ASPIRIN [Suspect]
     Indication: HEADACHE
     Dosage: 2 DF, UNK
     Route: 048

REACTIONS (5)
  - PARAESTHESIA [None]
  - SWELLING [None]
  - SWELLING FACE [None]
  - HYPOAESTHESIA [None]
  - MALAISE [None]
